FAERS Safety Report 4729894-7 (Version None)
Quarter: 2005Q3

REPORT INFORMATION
  Report Type: 
  Country: None (occurrence: None)
  Receive Date: 20050728
  Receipt Date: 20050726
  Transmission Date: 20060218
  Serious: Yes (Other)
  Sender: FDA-Public Use
  Company Number: 200511767BCC

PATIENT
  Age: 71 Year
  Sex: Female
  Weight: 38.1022 kg

DRUGS (6)
  1. PHILLIPS MILK OF MAGNESIA (MILK OF MAGNESIA) [Suspect]
     Indication: CONSTIPATION
     Dosage: 4800 MG TOTAL DAILY ORAL
     Route: 048
  2. TAMBOCOR [Concomitant]
  3. CEPHALEXIN [Concomitant]
  4. FOLIC ACID [Concomitant]
  5. PREVACID [Concomitant]
  6. MULTIVITAMIN [Concomitant]

REACTIONS (2)
  - HEPATOMEGALY [None]
  - LIVER INDURATION [None]
